FAERS Safety Report 6282752-1 (Version None)
Quarter: 2009Q3

REPORT INFORMATION
  Report Type: 
  Country: None (occurrence: None)
  Receive Date: 20090724
  Receipt Date: 20090721
  Transmission Date: 20100115
  Serious: Yes (Life-Threatening)
  Sender: FDA-Public Use
  Company Number: IT-JNJFOC-20090707165

PATIENT
  Age: 45 Year
  Sex: Male

DRUGS (3)
  1. LEVOFLOXACIN [Suspect]
     Indication: LUNG DISORDER
     Route: 048
  2. CEFEPIME [Concomitant]
     Route: 065
  3. AMOXICILLIN SODIUM W/CLAVULANATE POTASSIUM [Concomitant]
     Route: 065

REACTIONS (3)
  - RENAL FAILURE ACUTE [None]
  - RENAL NECROSIS [None]
  - RENAL VASCULITIS [None]
